FAERS Safety Report 8976553 (Version 2)
Quarter: 2013Q2

REPORT INFORMATION
  Report Type: Spontaneous
  Country: US (occurrence: US)
  Receive Date: 20121219
  Receipt Date: 20130606
  Transmission Date: 20140414
  Serious: No
  Sender: FDA-Public Use
  Company Number: US-AMGEN-USASP2012061803

PATIENT
  Age: 77 Year
  Sex: Female

DRUGS (14)
  1. PROLIA [Suspect]
     Indication: PRODUCT USED FOR UNKNOWN INDICATION
     Dosage: UNK
     Dates: start: 201203
  2. PROLIA [Suspect]
  3. PROLIA [Suspect]
  4. HUMIRA [Concomitant]
     Dosage: UNK UNK, Q2WK
  5. METHOTREXATE [Concomitant]
     Dosage: UNK UNK, QWK
  6. PREDNISONE [Concomitant]
     Dosage: UNK UNK, QWK
     Dates: start: 1982
  7. CITRACAL                           /00751520/ [Concomitant]
  8. WARFARIN [Concomitant]
  9. OMEPRAZOLE [Concomitant]
  10. ESTRADIOL [Concomitant]
  11. POTKLOR [Concomitant]
  12. NORTRIPTYLINE [Concomitant]
  13. AMILORIDE [Concomitant]
  14. FOLIC ACID [Concomitant]

REACTIONS (12)
  - Pain [Recovering/Resolving]
  - Pain in extremity [Recovering/Resolving]
  - Myalgia [Recovering/Resolving]
  - Hand deformity [Recovering/Resolving]
  - Asthenia [Recovering/Resolving]
  - Gait disturbance [Recovering/Resolving]
  - Rheumatoid arthritis [Recovering/Resolving]
  - Sleep disorder due to a general medical condition [Recovering/Resolving]
  - Urinary incontinence [Recovering/Resolving]
  - Fall [Recovering/Resolving]
  - Limb injury [Recovering/Resolving]
  - Pruritus [Recovering/Resolving]
